FAERS Safety Report 16057800 (Version 1)
Quarter: 2019Q1

REPORT INFORMATION
  Report Type: Spontaneous
  Country: FR (occurrence: FR)
  Receive Date: 20190311
  Receipt Date: 20190311
  Transmission Date: 20190418
  Serious: Yes (Life-Threatening)
  Sender: FDA-Public Use
  Company Number: FR-TEVA-2019-FR-1020882

PATIENT
  Age: 70 Year
  Sex: Female
  Weight: 66 kg

DRUGS (14)
  1. FLUDARABINE (PHOSPHATE DE) [Suspect]
     Active Substance: FLUDARABINE PHOSPHATE
     Indication: CHRONIC LYMPHOCYTIC LEUKAEMIA
     Route: 048
     Dates: start: 201012, end: 201105
  2. ZYPREXA [Suspect]
     Active Substance: OLANZAPINE
     Indication: BIPOLAR DISORDER
     Route: 048
     Dates: start: 2001
  3. LASILIX [Concomitant]
     Active Substance: FUROSEMIDE
     Dosage: 1 DOSAGE FORMS DAILY; 1 DF, 1X/DAY
     Dates: start: 2003, end: 20110704
  4. BACTRIM [Suspect]
     Active Substance: SULFAMETHOXAZOLE\TRIMETHOPRIM
     Indication: LYMPHOPENIA
     Dosage: 1 DOSAGE FORMS DAILY; 1 DF, 1X/DAY
     Route: 048
     Dates: start: 20110627, end: 20110702
  5. ENDOXAN [Suspect]
     Active Substance: CYCLOPHOSPHAMIDE
     Indication: CHRONIC LYMPHOCYTIC LEUKAEMIA
     Route: 048
     Dates: start: 201012, end: 201105
  6. TERCIAN [Concomitant]
     Active Substance: CYAMEMAZINE
     Dosage: 1 DOSAGE FORMS DAILY; 1 DF, 1X/DAY
     Dates: start: 2001, end: 20110704
  7. VFEND [Concomitant]
     Active Substance: VORICONAZOLE
     Indication: ASPERGILLUS INFECTION
     Dosage: UNK
     Route: 042
     Dates: start: 20110627, end: 20110627
  8. MABTHERA [Suspect]
     Active Substance: RITUXIMAB
     Indication: CHRONIC LYMPHOCYTIC LEUKAEMIA
     Route: 048
     Dates: start: 201012, end: 201105
  9. LAMOTRIGINE. [Suspect]
     Active Substance: LAMOTRIGINE
     Indication: BIPOLAR DISORDER
     Dosage: 3 DF IN THE MORNING + 2 DF IN THE EVENING
     Route: 048
     Dates: start: 2005
  10. LOXAPAC [Suspect]
     Active Substance: LOXAPINE
     Indication: BIPOLAR DISORDER
     Dosage: 10 DROPS IN THE MORNING AND AT NOON + 20 DROPS IN THE EVENING
     Route: 048
     Dates: start: 20110629, end: 20110704
  11. CITALOPRAM [Concomitant]
     Active Substance: CITALOPRAM HYDROBROMIDE
     Dosage: 2 DF IN THE MORNING + 1 DF AT NOON
     Dates: start: 2005
  12. VFEND [Suspect]
     Active Substance: VORICONAZOLE
     Indication: ASPERGILLUS INFECTION
     Dosage: 200 MILLIGRAM DAILY; 200 MG, 2X/DAY
     Route: 048
     Dates: start: 20110628, end: 20110702
  13. MIRTAZAPINE. [Concomitant]
     Active Substance: MIRTAZAPINE
     Dosage: 2 DOSAGE FORMS DAILY; 2 DF, 1X/DAY
     Dates: start: 2003, end: 20110702
  14. TRIATEC [Concomitant]
     Dosage: 1 DOSAGE FORMS DAILY; 1 DF, 1X/DAY
     Dates: start: 2003, end: 20110704

REACTIONS (1)
  - Pancytopenia [Not Recovered/Not Resolved]

NARRATIVE: CASE EVENT DATE: 20110702
